FAERS Safety Report 23132600 (Version 2)
Quarter: 2023Q4

REPORT INFORMATION
  Report Type: Spontaneous
  Country: US (occurrence: US)
  Receive Date: 20231101
  Receipt Date: 20231120
  Transmission Date: 20240109
  Serious: No
  Sender: FDA-Public Use
  Company Number: US-AMGEN-USASP2023194752

PATIENT
  Age: 66 Year
  Sex: Male

DRUGS (3)
  1. REPATHA [Suspect]
     Active Substance: EVOLOCUMAB
     Indication: Blood triglycerides
     Dosage: 420 MILLIGRAM/3.5 MILILITER, QMO
     Route: 058
     Dates: start: 20221207
  2. REPATHA [Suspect]
     Active Substance: EVOLOCUMAB
     Indication: Hyperlipidaemia
  3. REPATHA [Suspect]
     Active Substance: EVOLOCUMAB
     Indication: Coronary angioplasty

REACTIONS (1)
  - Drug dose omission by device [Unknown]

NARRATIVE: CASE EVENT DATE: 20231031
